FAERS Safety Report 5317758-X (Version None)
Quarter: 2007Q2

REPORT INFORMATION
  Report Type: 
  Country: None (occurrence: None)
  Receive Date: 20070502
  Receipt Date: 20070502
  Transmission Date: 20071010
  Serious: Yes (Hospitalization)
  Sender: FDA-Public Use
  Company Number: None

PATIENT
  Age: 56 Year
  Sex: Male

DRUGS (2)
  1. ENOXAPARIN SODIUM [Suspect]
     Indication: ATRIAL FIBRILLATION
     Dosage: 160MG  BID  SQ
     Route: 058
     Dates: start: 20070109, end: 20070124
  2. WARFARIN SODIUM [Suspect]
     Indication: ATRIAL FIBRILLATION
     Dosage: 4MG  EVERY DAY  PO
     Route: 048
     Dates: start: 20061226, end: 20070126

REACTIONS (2)
  - HAEMATOCRIT DECREASED [None]
  - HAEMATOMA [None]
